FAERS Safety Report 22684387 (Version 3)
Quarter: 2024Q2

REPORT INFORMATION
  Report Type: Report from Study
  Country: US (occurrence: US)
  Receive Date: 20230709
  Receipt Date: 20240521
  Transmission Date: 20240716
  Serious: Yes (Other)
  Sender: FDA-Public Use
  Company Number: US-ABBVIE-5317795

PATIENT
  Sex: Female

DRUGS (2)
  1. IMBRUVICA [Suspect]
     Active Substance: IBRUTINIB
     Indication: Chronic lymphocytic leukaemia
     Route: 048
     Dates: start: 20210816
  2. IMBRUVICA [Suspect]
     Active Substance: IBRUTINIB
     Indication: Chronic lymphocytic leukaemia
     Dosage: LAST ADMIN DATE- AUG 2021
     Route: 048
     Dates: start: 20210801

REACTIONS (7)
  - Spinal operation [Unknown]
  - Back pain [Unknown]
  - Arthralgia [Unknown]
  - Arthritis [Unknown]
  - Meniscus injury [Unknown]
  - Injury [Unknown]
  - Product lot number issue [Unknown]
